FAERS Safety Report 20589890 (Version 1)
Quarter: 2022Q1

REPORT INFORMATION
  Report Type: Spontaneous
  Country: FR (occurrence: FR)
  Receive Date: 20220314
  Receipt Date: 20220314
  Transmission Date: 20220424
  Serious: Yes (Hospitalization, Other)
  Sender: FDA-Public Use
  Company Number: None

PATIENT
  Age: 26 Year
  Sex: Female

DRUGS (4)
  1. NICOTINE [Suspect]
     Active Substance: NICOTINE
     Indication: Product used for unknown indication
     Dosage: UNK, UP TO 20 CIGARETTES PER SMOKING EPISODE
  2. COCAINE [Suspect]
     Active Substance: COCAINE
     Indication: Product used for unknown indication
     Dosage: UNK, NOT SPECIFIED, OCCASIONAL CONSUMPTION
     Dates: start: 2013, end: 2022
  3. COCAINE [Suspect]
     Active Substance: COCAINE
     Dosage: 2G EVERY 3 DAYS
     Dates: start: 2022
  4. ALCOHOL [Suspect]
     Active Substance: ALCOHOL
     Indication: Product used for unknown indication
     Dosage: UNK, AROUND 20 IU PER CONSUMPTION EPISODE
     Route: 048

REACTIONS (2)
  - Nicotine dependence [Unknown]
  - Exposure during pregnancy [Unknown]
